FAERS Safety Report 4590359-7 (Version None)
Quarter: 2005Q1

REPORT INFORMATION
  Report Type: 
  Country: None (occurrence: None)
  Receive Date: 20050217
  Receipt Date: 20050207
  Transmission Date: 20050727
  Serious: Yes (Death)
  Sender: FDA-Public Use
  Company Number: MK200502-0112-1

PATIENT
  Age: 37 Year
  Sex: Male

DRUGS (4)
  1. METHADOSE [Suspect]
     Indication: DRUG WITHDRAWAL MAINTENANCE THERAPY
     Dosage: 130 MG, Q DAY, PO
     Route: 048
  2. FLUOXETINE [Concomitant]
  3. TRAZODONE HCL [Concomitant]
  4. OLANZAPINE [Concomitant]

REACTIONS (7)
  - AGITATION [None]
  - ANOXIC ENCEPHALOPATHY [None]
  - CARDIAC ARREST [None]
  - DRUG WITHDRAWAL SYNDROME [None]
  - ELECTROCARDIOGRAM QT CORRECTED INTERVAL PROLONGED [None]
  - PNEUMONIA [None]
  - SINUS BRADYCARDIA [None]
